FAERS Safety Report 5626188-2 (Version None)
Quarter: 2008Q1

REPORT INFORMATION
  Report Type: 
  Country: None (occurrence: None)
  Receive Date: 20080213
  Receipt Date: 20080213
  Transmission Date: 20080703
  Serious: No
  Sender: FDA-Public Use
  Company Number: None

PATIENT

DRUGS (3)
  1. LIPITOR [Suspect]
     Indication: BLOOD CHOLESTEROL
     Dosage: .5MG DAILY
     Dates: start: 19990101, end: 20050101
  2. CADUET [Suspect]
     Indication: HYPERTENSION
     Dosage: .5/10 MG DAILY
     Dates: start: 20050101, end: 20080101
  3. DICLOFENAC SODIUM [Concomitant]

REACTIONS (3)
  - FATIGUE [None]
  - GENERALISED OEDEMA [None]
  - PAIN [None]
